FAERS Safety Report 13791673 (Version 1)
Quarter: 2017Q3

REPORT INFORMATION
  Report Type: Spontaneous
  Country: US (occurrence: US)
  Receive Date: 20170725
  Receipt Date: 20170725
  Transmission Date: 20171127
  Serious: Yes (Hospitalization)
  Sender: FDA-Public Use
  Company Number: PHEH2017US022254

PATIENT
  Sex: Male

DRUGS (1)
  1. AFINITOR [Suspect]
     Active Substance: EVEROLIMUS
     Indication: CARCINOID SYNDROME
     Dosage: 10 MG, UNK
     Route: 048

REACTIONS (5)
  - Neoplasm progression [Unknown]
  - Abdominal pain lower [Unknown]
  - Hepatic neoplasm [Unknown]
  - Intestinal obstruction [Unknown]
  - Constipation [Unknown]
